FAERS Safety Report 20800155 (Version 2)
Quarter: 2023Q2

REPORT INFORMATION
  Report Type: Spontaneous
  Country: US (occurrence: US)
  Receive Date: 20220509
  Receipt Date: 20230601
  Transmission Date: 20230722
  Serious: No
  Sender: FDA-Public Use
  Company Number: US-UCBSA-2022000533

PATIENT

DRUGS (3)
  1. CIMZIA [Suspect]
     Active Substance: CERTOLIZUMAB PEGOL
     Indication: Ankylosing spondylitis
     Dosage: UNK
  2. 3,3^-DIINDOLYLMETHANE [Concomitant]
     Active Substance: 3,3^-DIINDOLYLMETHANE
     Indication: Oestradiol increased
     Dosage: UNK
     Dates: start: 2021
  3. CALCIUM D GLUCARATE [Concomitant]
     Indication: Oestradiol increased
     Dosage: UNK
     Dates: start: 2021

REACTIONS (2)
  - Ankylosing spondylitis [Unknown]
  - Oestradiol increased [Unknown]
